FAERS Safety Report 6252440-6 (Version None)
Quarter: 2009Q3

REPORT INFORMATION
  Report Type: 
  Country: None (occurrence: None)
  Receive Date: 20090701
  Receipt Date: 20090626
  Transmission Date: 20100115
  Serious: Yes (Hospitalization)
  Sender: FDA-Public Use
  Company Number: DE-WYE-G03932209

PATIENT
  Age: 66 Year
  Sex: Female

DRUGS (35)
  1. TREVILOR [Suspect]
     Indication: DEPRESSION
     Route: 048
     Dates: start: 20080903, end: 20081020
  2. TREVILOR [Interacting]
     Route: 048
     Dates: start: 20081021, end: 20081023
  3. TREVILOR [Interacting]
     Route: 048
     Dates: start: 20081024, end: 20081024
  4. TREVILOR [Interacting]
     Route: 048
     Dates: start: 20081025, end: 20081101
  5. LYRICA [Interacting]
     Route: 048
     Dates: start: 20080805, end: 20081003
  6. LYRICA [Interacting]
     Route: 048
     Dates: start: 20081004, end: 20081017
  7. LYRICA [Interacting]
     Route: 048
     Dates: start: 20081018, end: 20081103
  8. LYRICA [Interacting]
     Route: 048
     Dates: start: 20081107, end: 20081116
  9. LYRICA [Interacting]
     Route: 048
     Dates: start: 20081217
  10. ENALAPRIL [Concomitant]
     Route: 048
     Dates: start: 20080605, end: 20081017
  11. ENALAPRIL [Concomitant]
     Route: 048
     Dates: start: 20081018, end: 20081023
  12. ENALAPRIL [Concomitant]
     Route: 048
     Dates: start: 20081024, end: 20081113
  13. ENALAPRIL [Concomitant]
     Route: 048
     Dates: start: 20081114, end: 20090208
  14. PANTOZOL [Concomitant]
     Route: 048
     Dates: start: 20080813, end: 20081018
  15. PANTOZOL [Concomitant]
     Route: 048
     Dates: start: 20081019, end: 20081030
  16. ASPIRIN [Concomitant]
     Route: 048
     Dates: start: 20080605, end: 20090216
  17. FOSAMAX [Concomitant]
     Route: 048
     Dates: start: 20080605, end: 20090216
  18. SPIRIVA [Concomitant]
     Route: 055
     Dates: start: 20080605, end: 20090216
  19. SYMBICORT [Concomitant]
     Route: 055
     Dates: start: 20080605, end: 20090216
  20. SODIUM CHLORIDE [Concomitant]
     Route: 048
     Dates: start: 20080825, end: 20080825
  21. SODIUM CHLORIDE [Concomitant]
     Route: 048
     Dates: start: 20081011, end: 20081119
  22. CALCIUM [Concomitant]
     Route: 048
     Dates: start: 20080828, end: 20081113
  23. NICOTINE [Concomitant]
     Dosage: TRANSDERMAL PATCH DELIBERATING 17.5 MG/D
     Route: 062
     Dates: start: 20080818, end: 20080818
  24. NICOTINE [Concomitant]
     Dosage: TRANSDERMAL PATCH DELIBERATING 35 MG/D
     Route: 062
     Dates: start: 20080828, end: 20080915
  25. NICOTINE [Concomitant]
     Dosage: TRANSDERMAL PATCH DELIBERATING 17.5 MG/D
     Route: 062
     Dates: start: 20080916, end: 20080927
  26. NICOTINE [Concomitant]
     Dosage: TRANSDERMAL PATCH DELIBERATING 8.3 MG/D
     Route: 062
     Dates: start: 20080928, end: 20080930
  27. NICOTINE [Concomitant]
     Dosage: TRANSDERMAL PATCH DELIBERATING 16.6 MG/D
     Route: 062
     Dates: start: 20081002, end: 20081110
  28. BISOPROLOL [Concomitant]
     Dosage: UNKNOWN
     Dates: start: 20081001
  29. PARACETAMOL [Concomitant]
     Dosage: IF REQUIRED, NO DETAILS PROVIDED
  30. IBUPROFEN [Concomitant]
     Dosage: IF REQUIRED, NO DETAILS PROVIDED
  31. APONAL [Interacting]
     Route: 048
     Dates: start: 20080611, end: 20080622
  32. APONAL [Interacting]
     Route: 048
     Dates: start: 20080623, end: 20080918
  33. APONAL [Interacting]
     Route: 048
     Dates: start: 20080919, end: 20081015
  34. APONAL [Interacting]
     Route: 048
     Dates: start: 20081016, end: 20081022
  35. APONAL [Interacting]
     Route: 048
     Dates: start: 20081023, end: 20081118

REACTIONS (6)
  - ALANINE AMINOTRANSFERASE INCREASED [None]
  - ASPARTATE AMINOTRANSFERASE INCREASED [None]
  - BLOOD ALKALINE PHOSPHATASE INCREASED [None]
  - CONDITION AGGRAVATED [None]
  - DRUG INTERACTION [None]
  - GAMMA-GLUTAMYLTRANSFERASE INCREASED [None]
